FAERS Safety Report 16401925 (Version 1)
Quarter: 2019Q2

REPORT INFORMATION
  Report Type: Spontaneous
  Country: US (occurrence: US)
  Receive Date: 20190607
  Receipt Date: 20190607
  Transmission Date: 20190711
  Serious: No
  Sender: FDA-Public Use
  Company Number: US-UNITED THERAPEUTICS-UNT-2019-009671

PATIENT
  Age: 69 Year
  Sex: Female
  Weight: 47.62 kg

DRUGS (2)
  1. ORENITRAM [Suspect]
     Active Substance: TREPROSTINIL
     Indication: PRODUCT USED FOR UNKNOWN INDICATION
     Route: 048
  2. REMODULIN [Suspect]
     Active Substance: TREPROSTINIL
     Indication: PULMONARY ARTERIAL HYPERTENSION
     Dosage: 0.012 ?G/KG, CONTINUING
     Route: 058
     Dates: start: 20190503

REACTIONS (5)
  - Sinus disorder [Unknown]
  - Dyspnoea [Unknown]
  - Lacrimation increased [Unknown]
  - Sneezing [Unknown]
  - Rhinorrhoea [Unknown]

NARRATIVE: CASE EVENT DATE: 201905
